FAERS Safety Report 4744234-5 (Version None)
Quarter: 2005Q3

REPORT INFORMATION
  Report Type: 
  Country: None (occurrence: None)
  Receive Date: 20050809
  Receipt Date: 20050727
  Transmission Date: 20060218
  Serious: Yes (Other)
  Sender: FDA-Public Use
  Company Number: 200511999GDS

PATIENT
  Age: 84 Year
  Sex: Female

DRUGS (1)
  1. AVELOX [Suspect]
     Indication: PNEUMONIA
     Dosage: 400 MG, QD, INTRAVENOUS
     Route: 042
     Dates: start: 20050622, end: 20050624

REACTIONS (3)
  - ANGINA PECTORIS [None]
  - HYPOTENSION [None]
  - ISCHAEMIC HEPATITIS [None]
